FAERS Safety Report 10170510 (Version 1)
Quarter: 2014Q2

REPORT INFORMATION
  Report Type: Report from Study
  Country: US (occurrence: US)
  Receive Date: 20140513
  Receipt Date: 20140513
  Transmission Date: 20141212
  Serious: Yes (Death)
  Sender: FDA-Public Use
  Company Number: PHEH2014US009704

PATIENT
  Sex: Female

DRUGS (2)
  1. GLEEVEC [Suspect]
     Indication: GASTRIC CANCER
     Dosage: 300 MG, QD
     Route: 048
  2. GLEEVEC [Suspect]
     Indication: SOFT TISSUE NEOPLASM

REACTIONS (1)
  - Death [Fatal]
